FAERS Safety Report 17864106 (Version 1)
Quarter: 2020Q2

REPORT INFORMATION
  Report Type: Spontaneous
  Country: US (occurrence: US)
  Receive Date: 20200605
  Receipt Date: 20200605
  Transmission Date: 20200714
  Serious: No
  Sender: FDA-Public Use
  Company Number: US-CIPLA LTD.-2020US02307

PATIENT

DRUGS (2)
  1. BUDESONIDE. [Suspect]
     Active Substance: BUDESONIDE
     Indication: UPPER-AIRWAY COUGH SYNDROME
     Dosage: UNK
     Dates: start: 20200325
  2. BUDESONIDE. [Suspect]
     Active Substance: BUDESONIDE
     Indication: RHINORRHOEA

REACTIONS (1)
  - Off label use [Unknown]

NARRATIVE: CASE EVENT DATE: 20200325
